FAERS Safety Report 9806123 (Version 2)
Quarter: 2014Q1

REPORT INFORMATION
  Report Type: Spontaneous
  Country: US (occurrence: US)
  Receive Date: 20140109
  Receipt Date: 20140124
  Transmission Date: 20141002
  Serious: Yes (Death, Hospitalization)
  Sender: FDA-Public Use
  Company Number: US-ACTELION-A-US2013-93193

PATIENT
  Age: 71 Year
  Sex: Female

DRUGS (9)
  1. OPSUMIT [Suspect]
     Indication: PORTOPULMONARY HYPERTENSION
     Dosage: 10 MG, QD
     Route: 048
  2. ALDACTONE [Concomitant]
     Dosage: 100 MG, QD
     Route: 048
     Dates: start: 20131220
  3. FLOMAX [Concomitant]
     Dosage: 0.4 MG, BID
     Route: 048
  4. LACTULOSE [Concomitant]
     Dosage: 20 G, TID
     Route: 048
  5. RESTORIL [Concomitant]
     Dosage: 15 MG, QPM
     Route: 048
  6. RIFAXIMIN [Concomitant]
     Dosage: 550 MG, BID
     Route: 048
  7. TYLENOL [Concomitant]
     Dosage: 500 MG, BID
     Route: 048
  8. WELLBUTRIN [Concomitant]
     Dosage: 150 MG, BID
     Route: 048
  9. ZOLOFT [Concomitant]
     Dosage: 100 MG, QD
     Route: 048

REACTIONS (2)
  - Respiratory failure [Fatal]
  - Pneumonia [Fatal]
